FAERS Safety Report 26154239 (Version 1)
Quarter: 2025Q4

REPORT INFORMATION
  Report Type: Spontaneous
  Country: CA (occurrence: CA)
  Receive Date: 20251215
  Receipt Date: 20251215
  Transmission Date: 20260117
  Serious: Yes (Death, Life-Threatening, Hospitalization, Disabling, Congenital Anomaly, Other)
  Sender: Haleon PLC
  Company Number: CA-HALEON-2278854

PATIENT
  Age: 43 Year
  Sex: Female

DRUGS (309)
  1. TUMS REGULAR STRENGTH [Suspect]
     Active Substance: CALCIUM CARBONATE
     Indication: Rheumatoid arthritis
  2. TUMS REGULAR STRENGTH [Suspect]
     Active Substance: CALCIUM CARBONATE
  3. TUMS REGULAR STRENGTH [Suspect]
     Active Substance: CALCIUM CARBONATE
     Dosage: ROUTE OF ADMINISTRATION: UNKNOWN
  4. ACETAMINOPHEN [Suspect]
     Active Substance: ACETAMINOPHEN
     Indication: Rheumatoid arthritis
     Dosage: ROUTE OF ADMINISTRATION: UNKNOWN
  5. ACETAMINOPHEN\OXYCODONE HYDROCHLORIDE [Suspect]
     Active Substance: ACETAMINOPHEN\OXYCODONE HYDROCHLORIDE
     Indication: Product used for unknown indication
     Dosage: ROUTE OF ADMINISTRATION: UNKNOWN
  6. ACETAMINOPHEN\OXYCODONE HYDROCHLORIDE [Suspect]
     Active Substance: ACETAMINOPHEN\OXYCODONE HYDROCHLORIDE
     Dosage: ROUTE OF ADMINISTRATION: UNKNOWN
  7. ACETAMINOPHEN\OXYCODONE HYDROCHLORIDE [Suspect]
     Active Substance: ACETAMINOPHEN\OXYCODONE HYDROCHLORIDE
     Dosage: ROUTE OF ADMINISTRATION: UNKNOWN
  8. PREDNISONE [Suspect]
     Active Substance: PREDNISONE
     Indication: Product used for unknown indication
     Dosage: ROUTE OF ADMINISTRATION: UNKNOWN
  9. ARAVA [Suspect]
     Active Substance: LEFLUNOMIDE
     Indication: Rheumatoid arthritis
     Dosage: ROUTE OF ADMINISTRATION: UNKNOWN
  10. ARAVA [Suspect]
     Active Substance: LEFLUNOMIDE
     Dosage: ROUTE OF ADMINISTRATION: UNKNOWN
  11. ARAVA [Suspect]
     Active Substance: LEFLUNOMIDE
     Dosage: ROUTE OF ADMINISTRATION: UNKNOWN
  12. ARAVA [Suspect]
     Active Substance: LEFLUNOMIDE
     Dosage: ROUTE OF ADMINISTRATION: UNKNOWN
  13. ARAVA [Suspect]
     Active Substance: LEFLUNOMIDE
  14. ARAVA [Suspect]
     Active Substance: LEFLUNOMIDE
  15. ARAVA [Suspect]
     Active Substance: LEFLUNOMIDE
  16. ARAVA [Suspect]
     Active Substance: LEFLUNOMIDE
     Dosage: ROUTE OF ADMINISTRATION: UNKNOWN
  17. ARAVA [Suspect]
     Active Substance: LEFLUNOMIDE
     Dosage: ROUTE OF ADMINISTRATION: UNKNOWN
  18. ARAVA [Suspect]
     Active Substance: LEFLUNOMIDE
     Dosage: ROUTE OF ADMINISTRATION: UNKNOWN
  19. ASACOL [Suspect]
     Active Substance: MESALAMINE
     Indication: Product used for unknown indication
     Dosage: ROUTE OF ADMINISTRATION: UNKNOWN
  20. ATIVAN [Suspect]
     Active Substance: LORAZEPAM
     Indication: Product used for unknown indication
     Dosage: ROUTE OF ADMINISTRATION: UNKNOWN
  21. CAFFEINE [Suspect]
     Active Substance: CAFFEINE
     Indication: Rheumatoid arthritis
     Dosage: ROUTE OF ADMINISTRATION: UNKNOWN
  22. CAFFEINE [Suspect]
     Active Substance: CAFFEINE
  23. CALCIUM GLUBIONATE [Suspect]
     Active Substance: CALCIUM GLUBIONATE
     Indication: Rheumatoid arthritis
     Dosage: ROUTE OF ADMINISTRATION: INTRAVENOUS DRIP
  24. CALCIUM GLUBIONATE [Suspect]
     Active Substance: CALCIUM GLUBIONATE
     Dosage: ROUTE OF ADMINISTRATION: UNKNOWN
  25. CALCIUM GLUBIONATE [Suspect]
     Active Substance: CALCIUM GLUBIONATE
  26. CALCIUM GLUBIONATE [Suspect]
     Active Substance: CALCIUM GLUBIONATE
  27. CALCIUM GLUBIONATE [Suspect]
     Active Substance: CALCIUM GLUBIONATE
  28. CALCIUM GLUBIONATE [Suspect]
     Active Substance: CALCIUM GLUBIONATE
     Dosage: ROUTE OF ADMINISTRATION: UNKNOWN
  29. CALCIUM GLUBIONATE [Suspect]
     Active Substance: CALCIUM GLUBIONATE
     Dosage: ROUTE OF ADMINISTRATION: INTRACARDIAC
  30. CALCIUM GLUBIONATE [Suspect]
     Active Substance: CALCIUM GLUBIONATE
     Dosage: ROUTE OF ADMINISTRATION: UNKNOWN
  31. CALCIUM LACTATE [Suspect]
     Active Substance: CALCIUM LACTATE
     Indication: Rheumatoid arthritis
     Dosage: ROUTE OF ADMINISTRATION: UNKNOWN
  32. CELECOXIB [Suspect]
     Active Substance: CELECOXIB
     Indication: Rheumatoid arthritis
     Dosage: ROUTE OF ADMINISTRATION: UNKNOWN
  33. CELECOXIB [Suspect]
     Active Substance: CELECOXIB
     Dosage: ROUTE OF ADMINISTRATION: UNKNOWN
  34. CELECOXIB [Suspect]
     Active Substance: CELECOXIB
     Dosage: ROUTE OF ADMINISTRATION: UNKNOWN
  35. CELECOXIB [Suspect]
     Active Substance: CELECOXIB
  36. CELECOXIB [Suspect]
     Active Substance: CELECOXIB
  37. CELECOXIB [Suspect]
     Active Substance: CELECOXIB
  38. CELECOXIB [Suspect]
     Active Substance: CELECOXIB
  39. CELECOXIB [Suspect]
     Active Substance: CELECOXIB
  40. CELECOXIB [Suspect]
     Active Substance: CELECOXIB
  41. CELECOXIB [Suspect]
     Active Substance: CELECOXIB
  42. CELECOXIB [Suspect]
     Active Substance: CELECOXIB
  43. CHLORAPREP [Suspect]
     Active Substance: CHLORHEXIDINE GLUCONATE\ISOPROPYL ALCOHOL
     Indication: Product used for unknown indication
     Dosage: ROUTE OF ADMINISTRATION: UNKNOWN, DOSE FORM: SOLUTION
  44. CHLORAPREP [Suspect]
     Active Substance: CHLORHEXIDINE GLUCONATE\ISOPROPYL ALCOHOL
     Dosage: DOSE FORM: SOLUTION
  45. CODEINE [Suspect]
     Active Substance: CODEINE
     Indication: Rheumatoid arthritis
     Dosage: PATIENT ROA: PERIARTICULAR
  46. CODEINE [Suspect]
     Active Substance: CODEINE
     Indication: Psoriatic arthropathy
     Dosage: ROUTE OF ADMINISTRATION: UNKNOWN
  47. CODEINE [Suspect]
     Active Substance: CODEINE
     Indication: Product used for unknown indication
     Dosage: ROUTE OF ADMINISTRATION: UNKNOWN
  48. CODEINE [Suspect]
     Active Substance: CODEINE
     Dosage: PATIENT ROA: SUBDERMAL
  49. CODEINE [Suspect]
     Active Substance: CODEINE
     Dosage: PATIENT ROA: SUBDERMAL
  50. CODEINE [Suspect]
     Active Substance: CODEINE
     Dosage: PATIENT ROA: SUBDERMAL
  51. CODEINE [Suspect]
     Active Substance: CODEINE
     Dosage: PATIENT ROA: INTRACARDIAC
  52. CODEINE [Suspect]
     Active Substance: CODEINE
     Dosage: PATIENT ROA: INTRAVENOUS DRIP
  53. CORTISONE [Suspect]
     Active Substance: CORTISONE
     Indication: Product used for unknown indication
     Dosage: ROUTE OF ADMINISTRATION: UNKNOWN
  54. CORTISONE [Suspect]
     Active Substance: CORTISONE
     Dosage: ROUTE OF ADMINISTRATION: UNKNOWN
  55. DIPHENHYDRAMINE [Suspect]
     Active Substance: DIPHENHYDRAMINE
     Indication: Product used for unknown indication
     Dosage: DOSE FORM AND ROUTE OF ADMINISTRATION:  UNKNOWN
  56. DIPHENHYDRAMINE [Suspect]
     Active Substance: DIPHENHYDRAMINE
     Dosage: ROUTE OF ADMINISTRATION:  UNKNOWN
  57. DOXYCYCLINE HYCLATE [Suspect]
     Active Substance: DOXYCYCLINE HYCLATE
     Indication: Rheumatoid arthritis
  58. DOXYCYCLINE HYCLATE [Suspect]
     Active Substance: DOXYCYCLINE HYCLATE
  59. DOXYCYCLINE HYCLATE [Suspect]
     Active Substance: DOXYCYCLINE HYCLATE
  60. DOXYCYCLINE HYCLATE [Suspect]
     Active Substance: DOXYCYCLINE HYCLATE
  61. DOXYCYCLINE HYCLATE [Suspect]
     Active Substance: DOXYCYCLINE HYCLATE
     Dosage: ROUTE OF ADMINISTRATION: UNKNOWN
  62. DOXYCYCLINE HYCLATE [Suspect]
     Active Substance: DOXYCYCLINE HYCLATE
  63. DOXYCYCLINE HYCLATE [Suspect]
     Active Substance: DOXYCYCLINE HYCLATE
  64. DOXYCYCLINE HYCLATE [Suspect]
     Active Substance: DOXYCYCLINE HYCLATE
     Dosage: ROUTE OF ADMINISTRATION: UNKNOWN
  65. ENBREL [Suspect]
     Active Substance: ETANERCEPT
     Indication: Rheumatoid arthritis
  66. ENBREL [Suspect]
     Active Substance: ETANERCEPT
     Indication: Psoriatic arthropathy
     Dosage: ROUTE OF ADMINISTRATION: UNKNOWN
  67. ENBREL [Suspect]
     Active Substance: ETANERCEPT
  68. ENBREL [Suspect]
     Active Substance: ETANERCEPT
  69. ENBREL [Suspect]
     Active Substance: ETANERCEPT
     Dosage: ROUTE OF ADMINISTRATION: UNKNOWN
  70. ENBREL [Suspect]
     Active Substance: ETANERCEPT
     Dosage: ROUTE OF ADMINISTRATION: UNKNOWN
  71. ENBREL [Suspect]
     Active Substance: ETANERCEPT
  72. ENBREL [Suspect]
     Active Substance: ETANERCEPT
     Dosage: ROUTE OF ADMINISTRATION: SUBDERMAL
  73. ENBREL [Suspect]
     Active Substance: ETANERCEPT
  74. ENBREL [Suspect]
     Active Substance: ETANERCEPT
  75. ENBREL [Suspect]
     Active Substance: ETANERCEPT
     Dosage: ROUTE OF ADMINISTRATION: SUBDERMAL
  76. ENBREL [Suspect]
     Active Substance: ETANERCEPT
     Dosage: ROUTE OF ADMINISTRATION: SUBDERMAL
  77. ENBREL [Suspect]
     Active Substance: ETANERCEPT
  78. ENBREL [Suspect]
     Active Substance: ETANERCEPT
  79. ENBREL [Suspect]
     Active Substance: ETANERCEPT
  80. ENBREL [Suspect]
     Active Substance: ETANERCEPT
     Dosage: ROUTE OF ADMINISTRATION: UNKNOWN
  81. ENBREL [Suspect]
     Active Substance: ETANERCEPT
     Dosage: ROUTE OF ADMINISTRATION: UNKNOWN
  82. ENBREL [Suspect]
     Active Substance: ETANERCEPT
  83. ENBREL [Suspect]
     Active Substance: ETANERCEPT
  84. ENBREL [Suspect]
     Active Substance: ETANERCEPT
  85. ERELZI [Suspect]
     Active Substance: ETANERCEPT-SZZS
     Indication: Rheumatoid arthritis
     Dosage: ROUTE OF ADMINISTRATION: SUBDERMAL
  86. ETHINYL ESTRADIOL\NORETHINDRONE [Suspect]
     Active Substance: ETHINYL ESTRADIOL\NORETHINDRONE
     Indication: Product used for unknown indication
     Dosage: ROUTE OF ADMINISTRATION: UNKNOWN
  87. GLUCOSAMINE [Suspect]
     Active Substance: GLUCOSAMINE
     Indication: Rheumatoid arthritis
  88. HUMIRA [Suspect]
     Active Substance: ADALIMUMAB
     Indication: Fibromyalgia
     Dosage: DOSE FORM: SOLUTION SUBCUTANEOUS
  89. HYALURONIDASE [Suspect]
     Active Substance: HYALURONIDASE
     Indication: Rheumatoid arthritis
  90. HYALURONIDASE [Suspect]
     Active Substance: HYALURONIDASE
     Dosage: ROUTE OF ADMINISTRATION: UNKNOWN
  91. HYDROCORTISONE BUTYRATE [Suspect]
     Active Substance: HYDROCORTISONE BUTYRATE
     Indication: Rheumatoid arthritis
     Dosage: ROUTE OF ADMINISTRATION: UNKNOWN
  92. HYDROCORTISONE BUTYRATE [Suspect]
     Active Substance: HYDROCORTISONE BUTYRATE
  93. HYDROCORTISONE SODIUM SUCCINATE [Suspect]
     Active Substance: HYDROCORTISONE SODIUM SUCCINATE
     Indication: Rheumatoid arthritis
     Dosage: ROUTE OF ADMINISTRATION: SUBDERMAL
  94. HYDROCORTISONE SODIUM SUCCINATE [Suspect]
     Active Substance: HYDROCORTISONE SODIUM SUCCINATE
     Dosage: DOSE FORM: POWDER FOR SOLUTION, ROUTE OF ADMINISTRATION: UNKNOWN
  95. HYDROXYCHLOROQUINE [Suspect]
     Active Substance: HYDROXYCHLOROQUINE
     Indication: Systemic lupus erythematosus
  96. HYDROXYCHLOROQUINE [Suspect]
     Active Substance: HYDROXYCHLOROQUINE
     Indication: Rheumatoid arthritis
     Dosage: ROUTE OF ADMINISTRATION: UNKNOWN
  97. HYDROXYCHLOROQUINE [Suspect]
     Active Substance: HYDROXYCHLOROQUINE
  98. HYDROXYCHLOROQUINE [Suspect]
     Active Substance: HYDROXYCHLOROQUINE
     Dosage: ROUTE OF ADMINISTRATION: UNKNOWN
  99. HYDROXYCHLOROQUINE [Suspect]
     Active Substance: HYDROXYCHLOROQUINE
     Dosage: ROUTE OF ADMINISTRATION: UNKNOWN
  100. HYDROXYCHLOROQUINE [Suspect]
     Active Substance: HYDROXYCHLOROQUINE
     Dosage: ROUTE OF ADMINISTRATION: UNKNOWN
  101. HYDROXYCHLOROQUINE [Suspect]
     Active Substance: HYDROXYCHLOROQUINE
     Dosage: ROUTE OF ADMINISTRATION: UNKNOWN
  102. HYDROXYCHLOROQUINE [Suspect]
     Active Substance: HYDROXYCHLOROQUINE
     Dosage: ROUTE OF ADMINISTRATION: UNKNOWN
  103. HYDROXYCHLOROQUINE [Suspect]
     Active Substance: HYDROXYCHLOROQUINE
  104. HYDROXYCHLOROQUINE [Suspect]
     Active Substance: HYDROXYCHLOROQUINE
  105. HYDROXYCHLOROQUINE [Suspect]
     Active Substance: HYDROXYCHLOROQUINE
  106. HYDROXYCHLOROQUINE [Suspect]
     Active Substance: HYDROXYCHLOROQUINE
  107. HYDROXYCHLOROQUINE [Suspect]
     Active Substance: HYDROXYCHLOROQUINE
     Dosage: ROUTE OF ADMINISTRATION: UNKNOWN
  108. HYDROXYCHLOROQUINE SULFATE [Suspect]
     Active Substance: HYDROXYCHLOROQUINE SULFATE
     Indication: Rheumatoid arthritis
     Dosage: ROUTE OF ADMINISTRATION: UNKNOWN
  109. HYDROXYCHLOROQUINE SULFATE [Suspect]
     Active Substance: HYDROXYCHLOROQUINE SULFATE
     Dosage: ROUTE OF ADMINISTRATION: UNKNOWN
  110. HYDROXYCHLOROQUINE SULFATE [Suspect]
     Active Substance: HYDROXYCHLOROQUINE SULFATE
  111. HYDROXYCHLOROQUINE SULFATE [Suspect]
     Active Substance: HYDROXYCHLOROQUINE SULFATE
  112. HYDROXYCHLOROQUINE SULFATE [Suspect]
     Active Substance: HYDROXYCHLOROQUINE SULFATE
  113. HYDROXYCHLOROQUINE SULFATE [Suspect]
     Active Substance: HYDROXYCHLOROQUINE SULFATE
  114. HYDROXYCHLOROQUINE SULFATE [Suspect]
     Active Substance: HYDROXYCHLOROQUINE SULFATE
     Dosage: ROUTE OF ADMINISTRATION: UNKNOWN
  115. HYDROXYCHLOROQUINE SULFATE [Suspect]
     Active Substance: HYDROXYCHLOROQUINE SULFATE
     Dosage: ROUTE OF ADMINISTRATION: UNKNOWN
  116. HYDROXYCHLOROQUINE SULFATE [Suspect]
     Active Substance: HYDROXYCHLOROQUINE SULFATE
  117. HYDROXYCHLOROQUINE SULFATE [Suspect]
     Active Substance: HYDROXYCHLOROQUINE SULFATE
     Dosage: ROUTE OF ADMINISTRATION: UNKNOWN
  118. HYDROXYCHLOROQUINE SULFATE [Suspect]
     Active Substance: HYDROXYCHLOROQUINE SULFATE
  119. HYDROXYCHLOROQUINE SULFATE [Suspect]
     Active Substance: HYDROXYCHLOROQUINE SULFATE
  120. HYDROXYCHLOROQUINE SULFATE [Suspect]
     Active Substance: HYDROXYCHLOROQUINE SULFATE
  121. HYDROXYCHLOROQUINE SULFATE [Suspect]
     Active Substance: HYDROXYCHLOROQUINE SULFATE
     Dosage: ROUTE OF ADMINISTRATION: UNKNOWN
  122. HYDROXYCHLOROQUINE SULFATE [Suspect]
     Active Substance: HYDROXYCHLOROQUINE SULFATE
     Dosage: ROUTE OF ADMINISTRATION: UNKNOWN
  123. CLIOQUINOL\FLUMETHASONE [Suspect]
     Active Substance: CLIOQUINOL\FLUMETHASONE
     Indication: Rheumatoid arthritis
  124. CLIOQUINOL\FLUMETHASONE [Suspect]
     Active Substance: CLIOQUINOL\FLUMETHASONE
     Dosage: ROUTE OF ADMINISTRATION: UNKNOWN
  125. CLIOQUINOL\FLUMETHASONE [Suspect]
     Active Substance: CLIOQUINOL\FLUMETHASONE
     Dosage: ROUTE OF ADMINISTRATION: UNKNOWN
  126. CLIOQUINOL\FLUMETHASONE [Suspect]
     Active Substance: CLIOQUINOL\FLUMETHASONE
  127. CLIOQUINOL\FLUMETHASONE [Suspect]
     Active Substance: CLIOQUINOL\FLUMETHASONE
  128. CLIOQUINOL\FLUMETHASONE [Suspect]
     Active Substance: CLIOQUINOL\FLUMETHASONE
  129. CLIOQUINOL\FLUMETHASONE [Suspect]
     Active Substance: CLIOQUINOL\FLUMETHASONE
     Dosage: ROUTE OF ADMINISTRATION: UNKNOWN
  130. CLIOQUINOL\FLUMETHASONE [Suspect]
     Active Substance: CLIOQUINOL\FLUMETHASONE
  131. CLIOQUINOL\FLUMETHASONE [Suspect]
     Active Substance: CLIOQUINOL\FLUMETHASONE
  132. CLIOQUINOL\FLUMETHASONE [Suspect]
     Active Substance: CLIOQUINOL\FLUMETHASONE
  133. CLIOQUINOL\FLUMETHASONE [Suspect]
     Active Substance: CLIOQUINOL\FLUMETHASONE
     Dosage: ROUTE OF ADMINISTRATION: UNKNOWN
  134. LORAZEPAM [Suspect]
     Active Substance: LORAZEPAM
     Indication: Product used for unknown indication
     Dosage: ROUTE OF ADMINISTRATION: UNKNOWN, DOSE FORM: UNKNOWN
  135. LORAZEPAM [Suspect]
     Active Substance: LORAZEPAM
     Dosage: ROUTE OF ADMINISTRATION: UNKNOWN
  136. FOSAPREPITANT DIMEGLUMINE [Suspect]
     Active Substance: FOSAPREPITANT DIMEGLUMINE
     Indication: Rheumatoid arthritis
     Dosage: ROUTE OF ADMINISTRATION: UNKNOWN
  137. FOSAPREPITANT DIMEGLUMINE [Suspect]
     Active Substance: FOSAPREPITANT DIMEGLUMINE
     Indication: Headache
     Dosage: ROUTE OF ADMINISTRATION: UNKNOWN
  138. FOSAPREPITANT DIMEGLUMINE [Suspect]
     Active Substance: FOSAPREPITANT DIMEGLUMINE
     Dosage: ROUTE OF ADMINISTRATION: UNKNOWN
  139. FOSAPREPITANT DIMEGLUMINE [Suspect]
     Active Substance: FOSAPREPITANT DIMEGLUMINE
     Dosage: ROUTE OF ADMINISTRATION: UNKNOWN
  140. FOSAPREPITANT DIMEGLUMINE [Suspect]
     Active Substance: FOSAPREPITANT DIMEGLUMINE
     Indication: Rheumatoid arthritis
  141. FOSAPREPITANT DIMEGLUMINE [Suspect]
     Active Substance: FOSAPREPITANT DIMEGLUMINE
     Indication: Headache
     Dosage: ROUTE OF ADMINISTRATION: UNKNOWN
  142. MELOXICAM [Suspect]
     Active Substance: MELOXICAM
     Indication: Product used for unknown indication
     Dosage: ROUTE OF ADMINISTRATION: UNKNOWN
  143. MELOXICAM [Suspect]
     Active Substance: MELOXICAM
     Dosage: ROUTE OF ADMINISTRATION: UNKNOWN
  144. MORPHINE [Suspect]
     Active Substance: MORPHINE
     Indication: Rheumatoid arthritis
  145. NAPROXEN SODIUM [Suspect]
     Active Substance: NAPROXEN SODIUM
     Indication: Product used for unknown indication
     Dosage: ROUTE OF ADMINISTRATION: UNKNOWN
  146. PANTOPRAZOLE SODIUM [Suspect]
     Active Substance: PANTOPRAZOLE SODIUM
     Indication: Product used for unknown indication
     Dosage: DOSE FORM: UNKNOWN, ROUTE OF ADMINISTRATION: UNKNOWN
  147. PANTOPRAZOLE SODIUM [Suspect]
     Active Substance: PANTOPRAZOLE SODIUM
     Dosage: DOSE FORM: UNKNOWN, ROUTE OF ADMINISTRATION: INTRACARDIAC
  148. PANTOPRAZOLE SODIUM [Suspect]
     Active Substance: PANTOPRAZOLE SODIUM
     Dosage: DOSE FORM: UNKNOWN, ROUTE OF ADMINISTRATION: UNKNOWN
  149. PANTOPRAZOLE SODIUM [Suspect]
     Active Substance: PANTOPRAZOLE SODIUM
     Dosage: DOSE FORM: UNKNOWN, ROUTE OF ADMINISTRATION: UNKNOWN
  150. PANTOPRAZOLE SODIUM [Suspect]
     Active Substance: PANTOPRAZOLE SODIUM
     Dosage: DOSE FORM: UNKNOWN, ROUTE OF ADMINISTRATION: UNKNOWN
  151. PANTOPRAZOLE SODIUM [Suspect]
     Active Substance: PANTOPRAZOLE SODIUM
     Dosage: DOSE FORM: UNKNOWN, ROUTE OF ADMINISTRATION: UNKNOWN
  152. PANTOPRAZOLE SODIUM [Suspect]
     Active Substance: PANTOPRAZOLE SODIUM
     Dosage: DOSE FORM: UNKNOWN, ROUTE OF ADMINISTRATION: UNKNOWN
  153. PANTOPRAZOLE SODIUM [Suspect]
     Active Substance: PANTOPRAZOLE SODIUM
     Dosage: DOSE FORM: UNKNOWN, ROUTE OF ADMINISTRATION: SUBDERMAL
  154. PANTOPRAZOLE SODIUM [Suspect]
     Active Substance: PANTOPRAZOLE SODIUM
     Dosage: DOSE FORM: UNKNOWN
  155. PANTOPRAZOLE SODIUM [Suspect]
     Active Substance: PANTOPRAZOLE SODIUM
     Dosage: DOSE FORM: UNKNOWN,  ROUTE OF ADMINISTRATION: SUBDERMAL
  156. PANTOPRAZOLE SODIUM [Suspect]
     Active Substance: PANTOPRAZOLE SODIUM
     Dosage: DOSE FORM: UNKNOWN
  157. PANTOPRAZOLE SODIUM [Suspect]
     Active Substance: PANTOPRAZOLE SODIUM
     Dosage: DOSE FORM: UNKNOWN, ROUTE OF ADMINISTRATION: UNKNOWN
  158. PANTOPRAZOLE SODIUM [Suspect]
     Active Substance: PANTOPRAZOLE SODIUM
     Dosage: DOSE FORM: UNKNOWN, ROUTE OF ADMINISTRATION: UNKNOWN
  159. PANTOPRAZOLE SODIUM [Suspect]
     Active Substance: PANTOPRAZOLE SODIUM
     Dosage: DOSE FORM: UNKNOWN, ROUTE OF ADMINISTRATION: UNKNOWN
  160. PANTOPRAZOLE SODIUM [Suspect]
     Active Substance: PANTOPRAZOLE SODIUM
     Dosage: DOSE FORM: UNKNOWN, ROUTE OF ADMINISTRATION: UNKNOWN
  161. PANTOPRAZOLE SODIUM [Suspect]
     Active Substance: PANTOPRAZOLE SODIUM
     Dosage: DOSE FORM: UNKNOWN, ROUTE OF ADMINISTRATION: UNKNOWN
  162. DIETARY SUPPLEMENT\HERBALS [Suspect]
     Active Substance: DIETARY SUPPLEMENT\HERBALS
     Indication: Rheumatoid arthritis
     Dosage: DOSE FORM:  DROPS ORAL, ROUTE OF ADMINISTRATION: UNKNOWN
  163. DIETARY SUPPLEMENT\HERBALS [Suspect]
     Active Substance: DIETARY SUPPLEMENT\HERBALS
     Dosage: DOSE FORM: ORAL DROPS, ROUTE OF ADMINISTRATION: UNKNOWN
  164. ALBUTEROL [Suspect]
     Active Substance: ALBUTEROL
     Indication: Rheumatoid arthritis
     Dosage: ROUTE OF ADMINISTRATION: UNKNOWN
  165. ALBUTEROL [Suspect]
     Active Substance: ALBUTEROL
     Dosage: ROUTE OF ADMINISTRATION: UNKNOWN
  166. ALBUTEROL [Suspect]
     Active Substance: ALBUTEROL
  167. ALBUTEROL [Suspect]
     Active Substance: ALBUTEROL
  168. ALBUTEROL [Suspect]
     Active Substance: ALBUTEROL
  169. ALBUTEROL [Suspect]
     Active Substance: ALBUTEROL
  170. ALBUTEROL [Suspect]
     Active Substance: ALBUTEROL
     Dosage: ROUTE OF ADMINISTRATION: UNKNOWN
  171. ALBUTEROL [Suspect]
     Active Substance: ALBUTEROL
     Dosage: PATIENT ROA: INTRACARDIAC
  172. ALBUTEROL [Suspect]
     Active Substance: ALBUTEROL
     Dosage: ROUTE OF ADMINISTRATION: UNKNOWN
  173. ALBUTEROL [Suspect]
     Active Substance: ALBUTEROL
     Dosage: PATIENT ROA: SUBDERMAL
  174. DICLOFENAC SODIUM [Suspect]
     Active Substance: DICLOFENAC SODIUM
     Indication: Rheumatoid arthritis
     Dosage: ROUTE OF ADMINISTRATION: UNKNOWN
  175. DICLOFENAC SODIUM [Suspect]
     Active Substance: DICLOFENAC SODIUM
     Indication: Rheumatoid arthritis
     Dosage: ROUTE OF ADMINISTRATION: UNKNOWN
  176. HYDROCORTISONE [Suspect]
     Active Substance: HYDROCORTISONE
     Indication: Rheumatoid arthritis
     Dosage: ROUTE OF ADMINISTRATION: UNKNOWN
  177. HYDROCORTISONE [Suspect]
     Active Substance: HYDROCORTISONE
     Dosage: ROUTE OF ADMINISTRATION: UNKNOWN
  178. HYDROCORTISONE [Suspect]
     Active Substance: HYDROCORTISONE
     Indication: Rheumatoid arthritis
     Dosage: DOSE FORM: UNKNOWN
  179. HYDROCORTISONE [Suspect]
     Active Substance: HYDROCORTISONE
     Dosage: DOSE FORM: UNKNOWN
  180. HYDROCORTISONE [Suspect]
     Active Substance: HYDROCORTISONE
     Dosage: DOSE FORM: UNKNOWN, ROUTE OF ADMINISTRATION: SUBDERMAL
  181. HYDROCORTISONE [Suspect]
     Active Substance: HYDROCORTISONE
     Dosage: DOSE FORM: UNKNOWN, ROUTE OF ADMINISTRATION:  UNKNOWN
  182. LANSOPRAZOLE [Suspect]
     Active Substance: LANSOPRAZOLE
     Indication: Rheumatoid arthritis
     Dosage: DOSE FORM: CAPSULE, DELAYED RELEASE
  183. PREGABALIN [Suspect]
     Active Substance: PREGABALIN
     Indication: Product used for unknown indication
     Dosage: ROUTE OF ADMINISTRATION:  UNKNOWN
  184. SIMPONI [Suspect]
     Active Substance: GOLIMUMAB
     Indication: Rheumatoid arthritis
     Dosage: ROUTE OF ADMINISTRATION:  UNKNOWN
  185. SIMPONI [Suspect]
     Active Substance: GOLIMUMAB
  186. SIMPONI [Suspect]
     Active Substance: GOLIMUMAB
     Dosage: ROUTE OF ADMINISTRATION:  UNKNOWN
  187. SIMPONI [Suspect]
     Active Substance: GOLIMUMAB
     Indication: Rheumatoid arthritis
     Dosage: DOSE FORM: SOLUTION SUBCUTANEOUS, ROUTE OF ADMINISTRATION:  UNKNOWN
  188. ALENDRONATE SODIUM [Suspect]
     Active Substance: ALENDRONATE SODIUM
     Indication: Rheumatoid arthritis
     Dosage: ROUTE OF ADMINISTRATION: UNKNOWN
  189. ALENDRONATE SODIUM [Suspect]
     Active Substance: ALENDRONATE SODIUM
     Dosage: ROUTE OF ADMINISTRATION: UNKNOWN
  190. ALENDRONATE SODIUM [Suspect]
     Active Substance: ALENDRONATE SODIUM
  191. ALENDRONATE SODIUM [Suspect]
     Active Substance: ALENDRONATE SODIUM
  192. ALENDRONATE SODIUM [Suspect]
     Active Substance: ALENDRONATE SODIUM
  193. ALENDRONATE SODIUM [Suspect]
     Active Substance: ALENDRONATE SODIUM
  194. ALENDRONATE SODIUM [Suspect]
     Active Substance: ALENDRONATE SODIUM
     Dosage: ROUTE OF ADMINISTRATION: UNKNOWN
  195. ALENDRONATE SODIUM [Suspect]
     Active Substance: ALENDRONATE SODIUM
     Dosage: PATIENT ROA: INTRACARDIAC
  196. ALENDRONATE SODIUM [Suspect]
     Active Substance: ALENDRONATE SODIUM
     Dosage: ROUTE OF ADMINISTRATION: UNKNOWN
  197. ALENDRONATE SODIUM [Suspect]
     Active Substance: ALENDRONATE SODIUM
     Dosage: PATIENT ROA: SUBDERMAL
  198. VOLTAREN [Suspect]
     Active Substance: DICLOFENAC SODIUM
     Indication: Rheumatoid arthritis
     Dosage: DOSE FORM: UNKNOWN, ROUTE OF ADMINISTRATION: UNKNOWN
  199. VOLTAREN [Suspect]
     Active Substance: DICLOFENAC SODIUM
     Indication: Osteoarthritis
     Dosage: DOSE FORM: UNKNOWN
  200. VOLTAREN [Suspect]
     Active Substance: DICLOFENAC SODIUM
     Indication: Inflammation
     Dosage: DOSE FORM: UNKNOWN, ROUTE OF ADMINISTRATION: SUBCUTANEOUS
  201. VOLTAREN [Suspect]
     Active Substance: DICLOFENAC SODIUM
     Dosage: DOSE FORM: UNKNOWN, ROUTE OF ADMINISTRATION: UNKNOWN
  202. VOLTAREN [Suspect]
     Active Substance: DICLOFENAC SODIUM
     Dosage: DOSE FORM: UNKNOWN, ROUTE OF ADMINISTRATION: UNKNOWN
  203. VOLTAREN [Suspect]
     Active Substance: DICLOFENAC SODIUM
     Dosage: DOSE FORM: UNKNOWN
  204. VOLTAREN [Suspect]
     Active Substance: DICLOFENAC SODIUM
     Dosage: DOSE FORM: UNKNOWN, ROUTE OF ADMINISTRATION: UNKNOWN
  205. VOLTAREN [Suspect]
     Active Substance: DICLOFENAC SODIUM
     Dosage: DOSE FORM: UNKNOWN, ROUTE OF ADMINISTRATION: SUBDERMAL
  206. VOLTAREN [Suspect]
     Active Substance: DICLOFENAC SODIUM
     Dosage: DOSE FORM: UNKNOWN, ROUTE OF ADMINISTRATION: UNKNOWN
  207. VOLTAREN [Suspect]
     Active Substance: DICLOFENAC SODIUM
     Dosage: DOSE FORM: UNKNOWN, ROUTE OF ADMINISTRATION: UNKNOWN
  208. VOLTAREN [Suspect]
     Active Substance: DICLOFENAC SODIUM
     Dosage: DOSE FORM: UNKNOWN, ROUTE OF ADMINISTRATION: UNKNOWN
  209. VOLTAREN [Suspect]
     Active Substance: DICLOFENAC SODIUM
     Dosage: DOSE FORM: UNKNOWN
  210. VOLTAREN [Suspect]
     Active Substance: DICLOFENAC SODIUM
     Dosage: DOSE FORM: UNKNOWN, ROUTE OF ADMINISTRATION: UNKNOWN
  211. VOLTAREN [Suspect]
     Active Substance: DICLOFENAC SODIUM
     Dosage: DOSE FORM: UNKNOWN
  212. VOLTAREN [Suspect]
     Active Substance: DICLOFENAC SODIUM
     Dosage: DOSE FORM: UNKNOWN, ROUTE OF ADMINISTRATION: UNKNOWN
  213. VOLTAREN [Suspect]
     Active Substance: DICLOFENAC SODIUM
     Dosage: DOSE FORM: UNKNOWN, ROUTE OF ADMINISTRATION: UNKNOWN
  214. VOLTAREN [Suspect]
     Active Substance: DICLOFENAC SODIUM
     Dosage: DOSE FORM: UNKNOWN, ROUTE OF ADMINISTRATION: UNKNOWN
  215. VOLTAREN [Suspect]
     Active Substance: DICLOFENAC SODIUM
     Dosage: DOSE FORM: UNKNOWN, ROUTE OF ADMINISTRATION: UNKNOWN
  216. DICLOFENAC SODIUM [Suspect]
     Active Substance: DICLOFENAC SODIUM
     Indication: Rheumatoid arthritis
     Dosage: ROUTE OF ADMINISTRATION: UNKNOWN
  217. DICLOFENAC SODIUM [Suspect]
     Active Substance: DICLOFENAC SODIUM
     Dosage: ROUTE OF ADMINISTRATION: UNKNOWN
  218. DICLOFENAC SODIUM [Suspect]
     Active Substance: DICLOFENAC SODIUM
     Dosage: ROUTE OF ADMINISTRATION: UNKNOWN
  219. DICLOFENAC SODIUM [Suspect]
     Active Substance: DICLOFENAC SODIUM
     Dosage: ROUTE OF ADMINISTRATION: UNKNOWN
  220. ISOPROPYL ALCOHOL [Suspect]
     Active Substance: ISOPROPYL ALCOHOL
     Indication: Product used for unknown indication
     Dosage: ROUTE OF ADMINISTRATION: UNKNOWN
  221. ISOPROPYL ALCOHOL [Suspect]
     Active Substance: ISOPROPYL ALCOHOL
  222. ISOPROPYL ALCOHOL [Suspect]
     Active Substance: ISOPROPYL ALCOHOL
  223. PARA-AMINOSALICYLIC ACID [Suspect]
     Active Substance: AMINOSALICYLIC ACID
     Indication: Rheumatoid arthritis
     Dosage: ROUTE OF ADMINISTRATION: INTRAVENOUS DRIP
  224. PARA-AMINOSALICYLIC ACID [Suspect]
     Active Substance: AMINOSALICYLIC ACID
     Indication: Psoriatic arthropathy
     Dosage: ROUTE OF ADMINISTRATION: INTRAVENOUS DRIP
  225. PARA-AMINOSALICYLIC ACID [Suspect]
     Active Substance: AMINOSALICYLIC ACID
     Indication: Psoriasis
     Dosage: ROUTE OF ADMINISTRATION: INTRAVENOUS DRIP
  226. PARA-AMINOSALICYLIC ACID [Suspect]
     Active Substance: AMINOSALICYLIC ACID
     Indication: Crohn^s disease
     Dosage: ROUTE OF ADMINISTRATION: INTRAVENOUS DRIP
  227. PARA-AMINOSALICYLIC ACID [Suspect]
     Active Substance: AMINOSALICYLIC ACID
     Indication: Colitis ulcerative
     Dosage: ROUTE OF ADMINISTRATION: INTRAVENOUS DRIP
  228. PARA-AMINOSALICYLIC ACID [Suspect]
     Active Substance: AMINOSALICYLIC ACID
     Indication: Ankylosing spondylitis
     Dosage: ROUTE OF ADMINISTRATION: INTRAVENOUS DRIP
  229. PARA-AMINOSALICYLIC ACID [Suspect]
     Active Substance: AMINOSALICYLIC ACID
     Dosage: ROUTE OF ADMINISTRATION: INTRAVENOUS DRIP
  230. PARA-AMINOSALICYLIC ACID [Suspect]
     Active Substance: AMINOSALICYLIC ACID
     Dosage: ROUTE OF ADMINISTRATION: UNKNOWN
  231. PARA-AMINOSALICYLIC ACID [Suspect]
     Active Substance: AMINOSALICYLIC ACID
     Dosage: ROUTE OF ADMINISTRATION: UNKNOWN
  232. PARA-AMINOSALICYLIC ACID [Suspect]
     Active Substance: AMINOSALICYLIC ACID
     Dosage: ROUTE OF ADMINISTRATION: UNKNOWN
  233. PARA-AMINOSALICYLIC ACID [Suspect]
     Active Substance: AMINOSALICYLIC ACID
     Dosage: ROUTE OF ADMINISTRATION: UNKNOWN
  234. PARA-AMINOSALICYLIC ACID [Suspect]
     Active Substance: AMINOSALICYLIC ACID
     Dosage: ROUTE OF ADMINISTRATION: UNKNOWN
  235. PARA-AMINOSALICYLIC ACID [Suspect]
     Active Substance: AMINOSALICYLIC ACID
     Dosage: ROUTE OF ADMINISTRATION: UNKNOWN
  236. PARA-AMINOSALICYLIC ACID [Suspect]
     Active Substance: AMINOSALICYLIC ACID
     Dosage: ROUTE OF ADMINISTRATION: UNKNOWN
  237. PHTHALYLSULFATHIAZOLE [Suspect]
     Active Substance: PHTHALYLSULFATHIAZOLE
     Indication: Urticaria
  238. PHTHALYLSULFATHIAZOLE [Suspect]
     Active Substance: PHTHALYLSULFATHIAZOLE
     Indication: Rheumatoid arthritis
     Dosage: PATIENT ROA: INTRACARDIAC
  239. PHTHALYLSULFATHIAZOLE [Suspect]
     Active Substance: PHTHALYLSULFATHIAZOLE
     Dosage: ROUTE OF ADMINISTRATION: INTRAVENOUS DRIP
  240. PHTHALYLSULFATHIAZOLE [Suspect]
     Active Substance: PHTHALYLSULFATHIAZOLE
  241. PHTHALYLSULFATHIAZOLE [Suspect]
     Active Substance: PHTHALYLSULFATHIAZOLE
  242. PHTHALYLSULFATHIAZOLE [Suspect]
     Active Substance: PHTHALYLSULFATHIAZOLE
  243. PHTHALYLSULFATHIAZOLE [Suspect]
     Active Substance: PHTHALYLSULFATHIAZOLE
     Dosage: ROUTE OF ADMINISTRATION: UNKNOWN
  244. PHTHALYLSULFATHIAZOLE [Suspect]
     Active Substance: PHTHALYLSULFATHIAZOLE
     Dosage: ROUTE OF ADMINISTRATION: UNKNOWN
  245. PHTHALYLSULFATHIAZOLE [Suspect]
     Active Substance: PHTHALYLSULFATHIAZOLE
     Dosage: ROUTE OF ADMINISTRATION: UNKNOWN
  246. PHTHALYLSULFATHIAZOLE [Suspect]
     Active Substance: PHTHALYLSULFATHIAZOLE
     Dosage: ROUTE OF ADMINISTRATION: UNKNOWN
  247. PHTHALYLSULFATHIAZOLE [Suspect]
     Active Substance: PHTHALYLSULFATHIAZOLE
     Dosage: ROUTE OF ADMINISTRATION: UNKNOWN
  248. PIROXICAM [Suspect]
     Active Substance: PIROXICAM
     Indication: Product used for unknown indication
     Dosage: ROUTE OF ADMINISTRATION: UNKNOWN
  249. PIROXICAM [Suspect]
     Active Substance: PIROXICAM
     Dosage: ROUTE OF ADMINISTRATION: UNKNOWN
  250. PLAQUENIL [Suspect]
     Active Substance: HYDROXYCHLOROQUINE SULFATE
     Indication: Rheumatoid arthritis
  251. PLAQUENIL [Suspect]
     Active Substance: HYDROXYCHLOROQUINE SULFATE
     Dosage: ROUTE OF ADMINISTRATION: UNKNOWN
  252. PLAQUENIL [Suspect]
     Active Substance: HYDROXYCHLOROQUINE SULFATE
     Dosage: ROUTE OF ADMINISTRATION: UNKNOWN
  253. PLAQUENIL [Suspect]
     Active Substance: HYDROXYCHLOROQUINE SULFATE
     Dosage: ROUTE OF ADMINISTRATION: UNKNOWN
  254. PLAQUENIL [Suspect]
     Active Substance: HYDROXYCHLOROQUINE SULFATE
     Dosage: ROUTE OF ADMINISTRATION: UNKNOWN
  255. PLAQUENIL [Suspect]
     Active Substance: HYDROXYCHLOROQUINE SULFATE
     Dosage: ROUTE OF ADMINISTRATION: UNKNOWN
  256. PLAQUENIL [Suspect]
     Active Substance: HYDROXYCHLOROQUINE SULFATE
     Dosage: ROUTE OF ADMINISTRATION: UNKNOWN
  257. PLAQUENIL [Suspect]
     Active Substance: HYDROXYCHLOROQUINE SULFATE
  258. PLAQUENIL [Suspect]
     Active Substance: HYDROXYCHLOROQUINE SULFATE
  259. PLAQUENIL [Suspect]
     Active Substance: HYDROXYCHLOROQUINE SULFATE
     Indication: Rheumatoid arthritis
  260. PREDNISONE [Suspect]
     Active Substance: PREDNISONE
     Indication: Rheumatoid arthritis
  261. PREDNISONE [Suspect]
     Active Substance: PREDNISONE
  262. PREDNISONE [Suspect]
     Active Substance: PREDNISONE
     Dosage: ROUTE OF ADMINISTRATION: UNKNOWN
  263. PREDNISONE [Suspect]
     Active Substance: PREDNISONE
     Dosage: ROUTE OF ADMINISTRATION: UNKNOWN
  264. PREDNISONE [Suspect]
     Active Substance: PREDNISONE
     Dosage: PATIENT ROA: INTRAVENOUS DRIP
  265. PREDNISONE [Suspect]
     Active Substance: PREDNISONE
     Dosage: PATIENT ROA: INTRAVENOUS DRIP
  266. PREDNISONE [Suspect]
     Active Substance: PREDNISONE
     Dosage: PATIENT ROA: INTRAVENOUS DRIP
  267. PREDNISONE [Suspect]
     Active Substance: PREDNISONE
  268. PREDNISONE [Suspect]
     Active Substance: PREDNISONE
  269. PREDNISONE [Suspect]
     Active Substance: PREDNISONE
     Dosage: ROUTE OF ADMINISTRATION: UNKNOWN
  270. PREDNISONE [Suspect]
     Active Substance: PREDNISONE
     Dosage: ROUTE OF ADMINISTRATION: UNKNOWN
  271. PREDNISONE [Suspect]
     Active Substance: PREDNISONE
     Dosage: ROUTE OF ADMINISTRATION: UNKNOWN
  272. PREGABALIN [Suspect]
     Active Substance: PREGABALIN
     Indication: Product used for unknown indication
     Dosage: ROUTE OF ADMINISTRATION: UNKNOWN
  273. PREVACID [Suspect]
     Active Substance: LANSOPRAZOLE
     Indication: Product used for unknown indication
     Dosage: ROUTE OF ADMINISTRATION: UNKNOWN
  274. PSEUDOEPHEDRINE [Suspect]
     Active Substance: PSEUDOEPHEDRINE
     Indication: Product used for unknown indication
     Dosage: ROUTE OF ADMINISTRATION: UNKNOWN
  275. QUETIAPINE FUMARATE [Suspect]
     Active Substance: QUETIAPINE FUMARATE
     Indication: Product used for unknown indication
     Dosage: ROUTE OF ADMINISTRATION: UNKNOWN
  276. QUETIAPINE FUMARATE [Suspect]
     Active Substance: QUETIAPINE FUMARATE
     Dosage: DOSE FORM: UNKNOWN
  277. QUETIAPINE FUMARATE [Suspect]
     Active Substance: QUETIAPINE FUMARATE
     Dosage: ROUTE OF ADMINISTRATION: UNKNOWN, DOSE FORM: UNKNOWN
  278. QUETIAPINE FUMARATE [Suspect]
     Active Substance: QUETIAPINE FUMARATE
     Dosage: DOSE FORM: UNKNOWN, PATIENT ROA: SUBDERMAL
  279. QUETIAPINE FUMARATE [Suspect]
     Active Substance: QUETIAPINE FUMARATE
     Dosage: DOSE FORM: UNKNOWN,  PATIENT ROA: SUBDERMAL
  280. QUETIAPINE FUMARATE [Suspect]
     Active Substance: QUETIAPINE FUMARATE
     Dosage: DOSE FORM: UNKNOWN, PATIENT ROA: SUBDERMAL
  281. RAMIPRIL [Suspect]
     Active Substance: RAMIPRIL
     Indication: Product used for unknown indication
     Dosage: ROUTE OF ADMINISTRATION: UNKNOWN
  282. CETIRIZINE HYDROCHLORIDE [Suspect]
     Active Substance: CETIRIZINE HYDROCHLORIDE
     Indication: Rheumatoid arthritis
     Dosage: ROUTE OF ADMINISTRATION: UNKNOWN
  283. CETIRIZINE HYDROCHLORIDE [Suspect]
     Active Substance: CETIRIZINE HYDROCHLORIDE
     Dosage: ROUTE OF ADMINISTRATION: UNKNOWN
  284. CETIRIZINE HYDROCHLORIDE [Suspect]
     Active Substance: CETIRIZINE HYDROCHLORIDE
     Dosage: ROUTE OF ADMINISTRATION: UNKNOWN
  285. CETIRIZINE HYDROCHLORIDE [Suspect]
     Active Substance: CETIRIZINE HYDROCHLORIDE
     Dosage: ROUTE OF ADMINISTRATION: UNKNOWN
  286. CETIRIZINE HYDROCHLORIDE [Suspect]
     Active Substance: CETIRIZINE HYDROCHLORIDE
     Dosage: ROUTE OF ADMINISTRATION: UNKNOWN
  287. CETIRIZINE HYDROCHLORIDE [Suspect]
     Active Substance: CETIRIZINE HYDROCHLORIDE
     Dosage: ROUTE OF ADMINISTRATION: UNKNOWN
  288. CETIRIZINE HYDROCHLORIDE [Suspect]
     Active Substance: CETIRIZINE HYDROCHLORIDE
     Dosage: ROUTE OF ADMINISTRATION: UNKNOWN
  289. CETIRIZINE HYDROCHLORIDE [Suspect]
     Active Substance: CETIRIZINE HYDROCHLORIDE
  290. CETIRIZINE HYDROCHLORIDE [Suspect]
     Active Substance: CETIRIZINE HYDROCHLORIDE
     Dosage: ROUTE OF ADMINISTRATION: SUBDERMAL
  291. CETIRIZINE HYDROCHLORIDE [Suspect]
     Active Substance: CETIRIZINE HYDROCHLORIDE
     Dosage: ROUTE OF ADMINISTRATION: SUBDERMAL
  292. CETIRIZINE HYDROCHLORIDE [Suspect]
     Active Substance: CETIRIZINE HYDROCHLORIDE
  293. CETIRIZINE HYDROCHLORIDE [Suspect]
     Active Substance: CETIRIZINE HYDROCHLORIDE
  294. REMICADE [Suspect]
     Active Substance: INFLIXIMAB
     Indication: Rheumatoid arthritis
     Dosage: DOSE FORM: POWDER FOR SOLUTION INTRAVENOUS
  295. SULFAMETHOXAZOLE\TRIMETHOPRIM [Suspect]
     Active Substance: SULFAMETHOXAZOLE\TRIMETHOPRIM
     Indication: Rheumatoid arthritis
     Dosage: ROUTE OF ADMINISTRATION: UNKNOWN
  296. HYALURONIDASE (HUMAN RECOMBINANT) [Suspect]
     Active Substance: HYALURONIDASE (HUMAN RECOMBINANT)
     Indication: Rheumatoid arthritis
  297. PREDNISONE [Suspect]
     Active Substance: PREDNISONE
     Indication: Rheumatoid arthritis
     Dosage: ROUTE OF ADMINISTRATION: UNKNOWN
  298. PREDNISONE [Suspect]
     Active Substance: PREDNISONE
     Indication: Arthritis
  299. PREDNISONE [Suspect]
     Active Substance: PREDNISONE
  300. PREDNISONE [Suspect]
     Active Substance: PREDNISONE
  301. PREDNISONE [Suspect]
     Active Substance: PREDNISONE
     Dosage: ROUTE OF ADMINISTRATION: UNKNOWN
  302. PREDNISONE [Suspect]
     Active Substance: PREDNISONE
  303. PREDNISONE [Suspect]
     Active Substance: PREDNISONE
  304. PREDNISONE [Suspect]
     Active Substance: PREDNISONE
  305. ZESTRIL [Suspect]
     Active Substance: LISINOPRIL
     Indication: Product used for unknown indication
     Dosage: ROUTE OF ADMINISTRATION: UNKNOWN
  306. TUMS ULTRA [Suspect]
     Active Substance: CALCIUM CARBONATE
     Indication: Rheumatoid arthritis
  307. ISOPROPYL ALCOHOL [Suspect]
     Active Substance: ISOPROPYL ALCOHOL
     Indication: Product used for unknown indication
     Dosage: DOSE FORM: LIQUID TOPICAL, ROUTE OF ADMINISTRATION: UNKNOWN
  308. LORAZEPAM [Concomitant]
     Active Substance: LORAZEPAM
     Indication: Product used for unknown indication
     Dosage: ROUTE OF ADMINISTRATION: UNKNOWN
  309. LANSOPRAZOLE [Concomitant]
     Active Substance: LANSOPRAZOLE
     Indication: Rheumatoid arthritis
     Dosage: DOSE FORM:  CAPSULE, DELAYED RELEASE

REACTIONS (23)
  - Lupus-like syndrome [Fatal]
  - Incorrect route of product administration [Fatal]
  - Insomnia [Fatal]
  - Memory impairment [Fatal]
  - Muscular weakness [Fatal]
  - Oedema peripheral [Fatal]
  - Pain in extremity [Fatal]
  - Respiratory disorder [Fatal]
  - Road traffic accident [Fatal]
  - Sleep disorder due to a general medical condition [Fatal]
  - Swelling [Fatal]
  - Lower limb fracture [Fatal]
  - Lower respiratory tract infection [Fatal]
  - Pancreatitis [Fatal]
  - Porphyria acute [Fatal]
  - Pulmonary fibrosis [Fatal]
  - Sleep disorder due to general medical condition, insomnia type [Fatal]
  - Swollen joint count increased [Fatal]
  - Vomiting [Fatal]
  - Weight decreased [Fatal]
  - Weight increased [Fatal]
  - White blood cell count increased [Fatal]
  - Wound [Fatal]
